FAERS Safety Report 16507139 (Version 18)
Quarter: 2020Q3

REPORT INFORMATION
  Report Type: Spontaneous
  Country: US (occurrence: US)
  Receive Date: 20190701
  Receipt Date: 20200806
  Transmission Date: 20201102
  Serious: Yes (Death, Hospitalization)
  Sender: FDA-Public Use
  Company Number: US-ACTELION-A-US2019-192528

PATIENT
  Age: 68 Year
  Sex: Female
  Weight: 47.62 kg

DRUGS (7)
  1. LASIX [Suspect]
     Active Substance: FUROSEMIDE
     Dosage: 1 TABLET EVERY OTHER DAY AT NIGHT
     Route: 065
  2. OPSUMIT [Suspect]
     Active Substance: MACITENTAN
     Indication: PULMONARY ARTERIAL HYPERTENSION
     Dosage: 10 MG, QD
     Route: 048
  3. ORENITRAM [Suspect]
     Active Substance: TREPROSTINIL
     Dosage: 7 MG, TID
     Route: 065
  4. ORENITRAM [Suspect]
     Active Substance: TREPROSTINIL
     Dosage: UNK
     Route: 065
  5. LASIX [Suspect]
     Active Substance: FUROSEMIDE
     Indication: PRODUCT USED FOR UNKNOWN INDICATION
     Dosage: UNK
     Route: 065
  6. REMODULIN [Concomitant]
     Active Substance: TREPROSTINIL
  7. ORENITRAM [Suspect]
     Active Substance: TREPROSTINIL
     Indication: PRODUCT USED FOR UNKNOWN INDICATION
     Dosage: 6.75 MG, TID
     Route: 065

REACTIONS (24)
  - Pneumonia [Unknown]
  - Pericardial effusion [Unknown]
  - Inflammation [Recovering/Resolving]
  - Feeling abnormal [Recovering/Resolving]
  - Fluid retention [Unknown]
  - Pulmonary arterial pressure increased [Unknown]
  - Hypotension [Unknown]
  - Presyncope [Recovered/Resolved]
  - Fatigue [Recovering/Resolving]
  - Peripheral swelling [Unknown]
  - Syncope [Recovered/Resolved]
  - Skin abrasion [Unknown]
  - Death [Fatal]
  - Therapy change [Unknown]
  - Dehydration [Recovered/Resolved]
  - Hospitalisation [Unknown]
  - Bronchitis [Unknown]
  - Dizziness [Recovering/Resolving]
  - Flushing [Unknown]
  - Palpitations [Unknown]
  - Bone pain [Unknown]
  - Dermatitis contact [Unknown]
  - Movement disorder [Recovering/Resolving]
  - Urinary tract infection [Not Recovered/Not Resolved]

NARRATIVE: CASE EVENT DATE: 201908
